FAERS Safety Report 18080753 (Version 3)
Quarter: 2020Q4

REPORT INFORMATION
  Report Type: Spontaneous
  Country: US (occurrence: US)
  Receive Date: 20200728
  Receipt Date: 20201124
  Transmission Date: 20210113
  Serious: No
  Sender: FDA-Public Use
  Company Number: US-PFIZER INC-2019184769

PATIENT
  Age: 11 Year
  Sex: Male
  Weight: 41.73 kg

DRUGS (4)
  1. GENOTROPIN [Suspect]
     Active Substance: SOMATROPIN
     Indication: PRADER-WILLI SYNDROME
     Dosage: 1.0 MG, DAILY (IN LEG)
     Dates: start: 2009
  2. GENOTROPIN [Suspect]
     Active Substance: SOMATROPIN
     Indication: BONE DISORDER
     Dosage: 1.2 MG, 1X/DAY (AT NIGHT)
  3. ANASTRAZOLE DENK [Concomitant]
     Active Substance: ANASTROZOLE
     Indication: BONE DISORDER
     Dosage: UNK
  4. ANASTRAZOLE DENK [Concomitant]
     Active Substance: ANASTROZOLE
     Indication: GROWTH DISORDER

REACTIONS (4)
  - Injection site pain [Not Recovered/Not Resolved]
  - Injection site bruising [Not Recovered/Not Resolved]
  - Weight increased [Unknown]
  - Reaction to excipient [Unknown]

NARRATIVE: CASE EVENT DATE: 202006
